FAERS Safety Report 13795371 (Version 1)
Quarter: 2017Q3

REPORT INFORMATION
  Report Type: Spontaneous
  Country: IT (occurrence: IT)
  Receive Date: 20170726
  Receipt Date: 20170726
  Transmission Date: 20171127
  Serious: Yes (Hospitalization)
  Sender: FDA-Public Use
  Company Number: IT-SUN PHARMACEUTICAL INDUSTRIES LTD-2017RR-145763

PATIENT
  Age: 84 Year
  Sex: Female

DRUGS (6)
  1. DIURESIX 10 MG [Concomitant]
     Active Substance: TORSEMIDE
     Indication: PRODUCT USED FOR UNKNOWN INDICATION
     Dosage: UNK
     Route: 065
  2. SERTRALINE [Suspect]
     Active Substance: SERTRALINE HYDROCHLORIDE
     Indication: MOOD ALTERED
     Dosage: UNK
     Route: 065
     Dates: start: 20170627
  3. LIPOSOM 28 MG/2 ML [Concomitant]
     Indication: MOOD ALTERED
     Dosage: UNK
     Route: 065
     Dates: start: 20170627
  4. LAMOTRIGINE. [Concomitant]
     Active Substance: LAMOTRIGINE
     Indication: PRODUCT USED FOR UNKNOWN INDICATION
     Dosage: UNK
     Route: 065
  5. CONGESCOR 1.25 MG [Concomitant]
     Active Substance: BISOPROLOL FUMARATE
     Indication: PRODUCT USED FOR UNKNOWN INDICATION
     Dosage: UNK
     Route: 065
  6. ADEMETIONINE 1,4-BUTANEDISULFONATE [Concomitant]
     Indication: MOOD ALTERED
     Dosage: UNK
     Route: 065
     Dates: start: 20170627

REACTIONS (1)
  - Loss of consciousness [Unknown]

NARRATIVE: CASE EVENT DATE: 20170704
